FAERS Safety Report 6820940-3 (Version None)
Quarter: 2010Q3

REPORT INFORMATION
  Report Type: 
  Country: None (occurrence: None)
  Receive Date: 20100707
  Receipt Date: 20070827
  Transmission Date: 20110219
  Serious: No
  Sender: FDA-Public Use
  Company Number: US-PFIZER INC-2007071147

PATIENT
  Sex: Female

DRUGS (1)
  1. ZOLOFT [Suspect]
     Route: 064

REACTIONS (6)
  - AGITATION [None]
  - DRUG EXPOSURE DURING PREGNANCY [None]
  - DYSPNOEA [None]
  - EATING DISORDER [None]
  - RESPIRATORY DISORDER [None]
  - TREMOR [None]
